FAERS Safety Report 9747588 (Version 1)
Quarter: 2013Q4

REPORT INFORMATION
  Report Type: Spontaneous
  Country: US (occurrence: None)
  Receive Date: 20131211
  Receipt Date: 20131211
  Transmission Date: 20140711
  Serious: Yes (Other)
  Sender: FDA-Public Use
  Company Number: None

PATIENT
  Age: 81 Year
  Sex: Female
  Weight: 100.25 kg

DRUGS (6)
  1. BACLOFEN [Suspect]
     Indication: COMPULSIVE LIP BITING
     Route: 048
     Dates: start: 20131107, end: 20131113
  2. BACLOFEN [Suspect]
     Indication: ADVERSE DRUG REACTION
     Route: 048
     Dates: start: 20131107, end: 20131113
  3. BENADRYL [Concomitant]
  4. FENTANYL [Concomitant]
  5. VITAMIN B12 [Concomitant]
  6. MULTIVITAMIN [Concomitant]

REACTIONS (9)
  - Fall [None]
  - Tremor [None]
  - Hypoaesthesia [None]
  - Local swelling [None]
  - Pain [None]
  - Eye pain [None]
  - Weight bearing difficulty [None]
  - Cystitis [None]
  - Fungal infection [None]
